FAERS Safety Report 5986823-6 (Version None)
Quarter: 2008Q4

REPORT INFORMATION
  Report Type: 
  Country: None (occurrence: None)
  Receive Date: 20081203
  Receipt Date: 20081125
  Transmission Date: 20090506
  Serious: Yes (Death, Hospitalization)
  Sender: FDA-Public Use
  Company Number: 2007JP004165

PATIENT
  Age: 52 Year
  Sex: Female
  Weight: 41.8 kg

DRUGS (23)
  1. TACROLIMUS [Suspect]
     Indication: LUPUS NEPHRITIS
     Dosage: 3 MG  UNKNOWN/D ORAL
     Route: 048
     Dates: start: 20070424
  2. NIZATIDINE [Suspect]
     Dosage: 150 MG,  UNKNOWN/D ORAL
     Route: 048
     Dates: end: 20070609
  3. PREDNISOLONE [Concomitant]
  4. METHYLPREDSOLON (METHYLPREDNISOLONE) INJECTION [Concomitant]
  5. BREDININ (MIZORIBINE) [Concomitant]
  6. SELBEX (TEPRENONE) [Concomitant]
  7. JUVELA N (TOCOPHERYL NICOTINATE) CAPSULE [Concomitant]
  8. GASTROZEPIN [Concomitant]
  9. LIPITOR [Concomitant]
  10. LOSARTAN POTASSIUM [Concomitant]
  11. LASIX [Concomitant]
  12. ACECOL (TEMOCAPRIL HYDROCHLORIDE) [Concomitant]
  13. FOSAMAC (ALENDRONATE SODIUM) [Concomitant]
  14. BASEN (VOGLIBOSE) [Concomitant]
  15. PERSANTIN [Concomitant]
  16. NOVOLIN 30R( INSULIN HUMAN, INSULIN HUMAN INJECTION, ISOPHANE) INJECTI [Concomitant]
  17. WARFARIN SODIUM [Concomitant]
  18. LOSARTAN POTASSIUM W/HYDROCHLOROTHIAZIDE (LOSARTAN POTASSIUM) [Concomitant]
  19. BONALON (ALENDRONATE SODIUM) [Concomitant]
  20. ASPIRIN [Concomitant]
  21. URSO 250 [Concomitant]
  22. MAGLAX (MAGNESIUM OXIDE) [Concomitant]
  23. FERROMIA (FERROUS SULFATE) [Concomitant]

REACTIONS (6)
  - ALOPECIA [None]
  - ANAEMIA [None]
  - CELLULITIS [None]
  - INJURY [None]
  - SEPSIS [None]
  - WHITE BLOOD CELL COUNT DECREASED [None]
